FAERS Safety Report 6821116-6 (Version None)
Quarter: 2010Q3

REPORT INFORMATION
  Report Type: 
  Country: None (occurrence: None)
  Receive Date: 20100707
  Receipt Date: 20080313
  Transmission Date: 20110219
  Serious: No
  Sender: FDA-Public Use
  Company Number: US-PFIZER INC-2008025764

PATIENT
  Sex: Male

DRUGS (3)
  1. ZOLOFT [Suspect]
     Indication: DEPRESSION
  2. WELLBUTRIN [Concomitant]
     Indication: DEPRESSION
  3. CHANTIX [Concomitant]
     Indication: SMOKING CESSATION THERAPY

REACTIONS (1)
  - DEPRESSION [None]
